FAERS Safety Report 6242264-8 (Version None)
Quarter: 2009Q2

REPORT INFORMATION
  Report Type: 
  Country: None (occurrence: None)
  Receive Date: 20090622
  Receipt Date: 20090622
  Transmission Date: 20091009
  Serious: Yes (Other)
  Sender: FDA-Public Use
  Company Number: None

PATIENT
  Age: 51 Year
  Sex: Male
  Weight: 88.4514 kg

DRUGS (1)
  1. ZICAM NASAL GEL NORMAL MATRIXX [Suspect]
     Indication: NASOPHARYNGITIS
     Dosage: ONE OR TWO PUMPS EVERY 6 HOURS NASAL
     Route: 045
     Dates: start: 20090526, end: 20090605

REACTIONS (3)
  - AGEUSIA [None]
  - BURNING SENSATION [None]
  - HYPOSMIA [None]
